FAERS Safety Report 7411931-2 (Version None)
Quarter: 2011Q2

REPORT INFORMATION
  Report Type: 
  Country: None (occurrence: None)
  Receive Date: 20110405
  Receipt Date: 20110328
  Transmission Date: 20111010
  Serious: Yes (Hospitalization)
  Sender: FDA-Public Use
  Company Number: 2010SP066063

PATIENT
  Age: 32 Year
  Sex: Female
  Weight: 50 kg

DRUGS (7)
  1. PROGE DEPOT [Concomitant]
  2. DUPHASTON [Concomitant]
  3. FOLLISTIM [Suspect]
     Indication: IN VITRO FERTILISATION
     Dosage: 150, 225 IM
     Route: 030
     Dates: start: 20100920, end: 20100922
  4. FOLLISTIM [Suspect]
     Indication: IN VITRO FERTILISATION
     Dosage: 150, 225 IM
     Route: 030
     Dates: start: 20100915, end: 20100919
  5. BUSERECUR [Concomitant]
  6. GANIREST (GANIRELIX /01453701/) [Suspect]
     Indication: PREVENTION OF PREMATURE OVULATION
     Dosage: 0.25 MG, SC
     Route: 058
     Dates: start: 20100920, end: 20100922
  7. NORGESTREL AND ETHINYL ESTRADIOL [Concomitant]

REACTIONS (2)
  - DRUG EXPOSURE BEFORE PREGNANCY [None]
  - ECTOPIC PREGNANCY [None]
